FAERS Safety Report 13939361 (Version 1)
Quarter: 2017Q3

REPORT INFORMATION
  Report Type: Spontaneous
  Country: US (occurrence: None)
  Receive Date: 20170906
  Receipt Date: 20170906
  Transmission Date: 20171127
  Serious: Yes (Disabling)
  Sender: FDA-Public Use
  Company Number: None

PATIENT
  Sex: Female
  Weight: 54.43 kg

DRUGS (3)
  1. XANAX [Suspect]
     Active Substance: ALPRAZOLAM
     Indication: SLEEP DISORDER
     Route: 048
     Dates: start: 20160810, end: 20170401
  2. ESCITALOPRAM [Suspect]
     Active Substance: ESCITALOPRAM OXALATE
     Indication: SLEEP DISORDER
     Route: 048
     Dates: start: 20160810, end: 20170401
  3. LEVOTHYROXIN [Concomitant]
     Active Substance: LEVOTHYROXINE

REACTIONS (18)
  - Housebound [None]
  - Abnormal loss of weight [None]
  - Neuralgia [None]
  - Cognitive disorder [None]
  - Brain injury [None]
  - Seizure [None]
  - Fear [None]
  - Paraesthesia [None]
  - Impaired driving ability [None]
  - Impaired self-care [None]
  - Pain [None]
  - Mania [None]
  - Suicidal ideation [None]
  - Agoraphobia [None]
  - Mental impairment [None]
  - Physical disability [None]
  - Withdrawal syndrome [None]
  - Tremor [None]

NARRATIVE: CASE EVENT DATE: 20160810
